FAERS Safety Report 25079485 (Version 2)
Quarter: 2025Q1

REPORT INFORMATION
  Report Type: Spontaneous
  Country: FR (occurrence: FR)
  Receive Date: 20250314
  Receipt Date: 20250318
  Transmission Date: 20250409
  Serious: Yes (Death)
  Sender: PFIZER
  Company Number: FR-PFIZER INC-PV202500031386

PATIENT
  Age: 77 Year
  Sex: Female

DRUGS (1)
  1. ELREXFIO [Suspect]
     Active Substance: ELRANATAMAB-BCMM
     Indication: Plasma cell myeloma
     Dates: end: 20241002

REACTIONS (2)
  - Plasma cell myeloma [Fatal]
  - Malignant neoplasm progression [Fatal]
